FAERS Safety Report 9969586 (Version 1)
Quarter: 2014Q1

REPORT INFORMATION
  Report Type: Spontaneous
  Country: US (occurrence: None)
  Receive Date: 20140304
  Receipt Date: 20140304
  Transmission Date: 20141002
  Serious: No
  Sender: FDA-Public Use
  Company Number: None

PATIENT
  Age: 29 Year
  Sex: Female
  Weight: 57 kg

DRUGS (7)
  1. DOXYCYCLINE [Suspect]
     Route: 048
     Dates: start: 20140222, end: 20140222
  2. DEPAKOTE [Concomitant]
  3. PEPCID [Concomitant]
  4. HALDOL [Concomitant]
  5. NORCO [Concomitant]
  6. LISINOPRIL [Concomitant]
  7. AMBIEN [Concomitant]

REACTIONS (2)
  - Burning sensation [None]
  - Pruritus generalised [None]
